FAERS Safety Report 14732782 (Version 1)
Quarter: 2018Q2

REPORT INFORMATION
  Report Type: Spontaneous
  Country: BR (occurrence: BR)
  Receive Date: 20180409
  Receipt Date: 20180409
  Transmission Date: 20180711
  Serious: Yes (Other)
  Sender: FDA-Public Use
  Company Number: BR-ABBVIE-18K-020-2315322-00

PATIENT
  Sex: Male
  Weight: 100 kg

DRUGS (9)
  1. CARBAMAZEPINE. [Concomitant]
     Active Substance: CARBAMAZEPINE
     Indication: DEPRESSION
     Route: 048
     Dates: start: 2013
  2. SERTRALINE [Concomitant]
     Active Substance: SERTRALINE HYDROCHLORIDE
     Indication: DEPRESSION
     Route: 048
     Dates: start: 2013
  3. SIMVASTATIN. [Concomitant]
     Active Substance: SIMVASTATIN
     Indication: BLOOD CHOLESTEROL ABNORMAL
     Route: 048
     Dates: start: 2013
  4. ATENOLOL. [Concomitant]
     Active Substance: ATENOLOL
     Indication: PRODUCT USED FOR UNKNOWN INDICATION
     Route: 048
     Dates: start: 2015
  5. VELIJA [Concomitant]
     Active Substance: DULOXETINE HYDROCHLORIDE
     Indication: LABYRINTHITIS
     Dosage: 1 TABLET WHENEVER FEELS DIZZINESS
     Route: 048
     Dates: start: 2013
  6. AZATHIOPRINE. [Concomitant]
     Active Substance: AZATHIOPRINE
     Indication: CROHN^S DISEASE
     Route: 048
     Dates: start: 2015
  7. HUMIRA [Suspect]
     Active Substance: ADALIMUMAB
     Indication: CROHN^S DISEASE
     Route: 058
     Dates: start: 20151029
  8. PURAN [Concomitant]
     Active Substance: LEVOTHYROXINE SODIUM
     Indication: THYROID DISORDER
     Route: 046
     Dates: start: 2008
  9. CINNARIZINE [Concomitant]
     Active Substance: CINNARIZINE
     Indication: LABYRINTHITIS
     Dosage: 1 TABLET WHENEVER FEELS DIZZINESS
     Route: 048
     Dates: start: 2013

REACTIONS (4)
  - Inguinal hernia [Not Recovered/Not Resolved]
  - Hydrocele [Not Recovered/Not Resolved]
  - Anal fistula [Recovered/Resolved]
  - Benign prostatic hyperplasia [Recovered/Resolved]
